FAERS Safety Report 24129940 (Version 2)
Quarter: 2024Q3

REPORT INFORMATION
  Report Type: Spontaneous
  Country: CA (occurrence: CA)
  Receive Date: 20240724
  Receipt Date: 20240920
  Transmission Date: 20241017
  Serious: Yes (Other)
  Sender: CELLTRION
  Company Number: CA-PFIZER INC-202400215315

PATIENT

DRUGS (1)
  1. INFLECTRA [Suspect]
     Active Substance: INFLIXIMAB-DYYB
     Indication: Colitis ulcerative
     Dosage: 7.5 MG/KG, EVERY 6 WEEKS (7500 MICROGRAM/KILOGRAM)
     Route: 042
     Dates: start: 20240606

REACTIONS (1)
  - Nephrolithiasis [Unknown]
